FAERS Safety Report 10067287 (Version 1)
Quarter: 2014Q2

REPORT INFORMATION
  Report Type: Spontaneous
  Country: US (occurrence: None)
  Receive Date: 20140408
  Receipt Date: 20140408
  Transmission Date: 20141212
  Serious: Yes (Disabling)
  Sender: FDA-Public Use
  Company Number: None

PATIENT
  Sex: Female

DRUGS (3)
  1. PERCOCET [Suspect]
     Indication: BACK PAIN
     Dosage: ONE EVERY 6 HOURS/190 AS NEEDED TAKEN BY MOUTH
     Route: 048
     Dates: start: 20140319
  2. PERCOCET [Suspect]
     Indication: SPINAL CORD HERNIATION
     Dosage: ONE EVERY 6 HOURS/190 AS NEEDED TAKEN BY MOUTH
     Route: 048
     Dates: start: 20140319
  3. PERCOCET [Suspect]
     Dosage: ONE EVERY 6 HOURS/190 AS NEEDED TAKEN BY MOUTH
     Route: 048
     Dates: start: 20140319

REACTIONS (7)
  - Nausea [None]
  - Chest pain [None]
  - Chills [None]
  - Pain [None]
  - Drug ineffective [None]
  - Product substitution issue [None]
  - Product quality issue [None]
